FAERS Safety Report 10551249 (Version 1)
Quarter: 2014Q4

REPORT INFORMATION
  Report Type: Spontaneous
  Country: US (occurrence: None)
  Receive Date: 20141028
  Receipt Date: 20141028
  Transmission Date: 20150529
  Serious: Yes (Other)
  Sender: FDA-Public Use
  Company Number: None

PATIENT
  Age: 32 Year
  Sex: Female
  Weight: 70.3 kg

DRUGS (2)
  1. PREDNISOLONE. [Suspect]
     Active Substance: PREDNISOLONE
     Indication: DISEASE RECURRENCE
     Dosage: ONE DROP EVERY HOUR WHILE AWAKE TOPICAL DROP RIGHT EYE
     Route: 061
     Dates: start: 20120710
  2. PREDNISOLONE. [Suspect]
     Active Substance: PREDNISOLONE
     Indication: UVEITIS
     Dosage: ONE DROP EVERY HOUR WHILE AWAKE TOPICAL DROP RIGHT EYE
     Route: 061
     Dates: start: 20120710

REACTIONS (1)
  - Drug ineffective [None]

NARRATIVE: CASE EVENT DATE: 20141021
